FAERS Safety Report 8720782 (Version 2)
Quarter: 2015Q2

REPORT INFORMATION
  Report Type: Report from Study
  Country: US (occurrence: US)
  Receive Date: 20120813
  Receipt Date: 20150401
  Transmission Date: 20150821
  Serious: Yes (Other)
  Sender: FDA-Public Use
  Company Number: US-ROCHE-1099852

PATIENT
  Sex: Male

DRUGS (8)
  1. LIDOCAINE. [Concomitant]
     Active Substance: LIDOCAINE
     Route: 040
  2. DOPAMINE [Concomitant]
     Active Substance: DOPAMINE\DOPAMINE HYDROCHLORIDE
  3. NITROGLYCERIN. [Concomitant]
     Active Substance: NITROGLYCERIN
     Route: 060
  4. CARDIZEM [Concomitant]
     Active Substance: DILTIAZEM HYDROCHLORIDE
     Dosage: EVERY SIX HOURS
     Route: 048
  5. ACTIVASE [Suspect]
     Active Substance: ALTEPLASE
     Indication: ACUTE MYOCARDIAL INFARCTION
     Route: 042
     Dates: start: 19881117
  6. ASPIRIN. [Concomitant]
     Active Substance: ASPIRIN
     Route: 065
  7. MEXILETINE [Concomitant]
     Active Substance: MEXILETINE
     Route: 048
  8. ATROPINE [Concomitant]
     Active Substance: ATROPINE
     Route: 042

REACTIONS (7)
  - Extrasystoles [Unknown]
  - Nausea [Unknown]
  - Dyspnoea [Unknown]
  - Chest pain [Unknown]
  - Vomiting [Unknown]
  - Hypotension [Unknown]
  - Hyperhidrosis [Unknown]
